FAERS Safety Report 4626338-0 (Version None)
Quarter: 2005Q2

REPORT INFORMATION
  Report Type: 
  Country: None (occurrence: None)
  Receive Date: 20050404
  Receipt Date: 20050330
  Transmission Date: 20051028
  Serious: Yes (Death)
  Sender: FDA-Public Use
  Company Number: US-GLAXOSMITHKLINE-A0551828A

PATIENT
  Age: 78 Year
  Sex: Male

DRUGS (9)
  1. AMOXICILLIN + CLAVULANIC ACID [Suspect]
     Dosage: 1600MG PER DAY
     Route: 048
     Dates: start: 20020225, end: 20020307
  2. PIPERACILLIN/TAZOBACTAM [Suspect]
     Dosage: 12G PER DAY
     Route: 042
     Dates: start: 20020222, end: 20020225
  3. LEVOTHYROXINE [Concomitant]
     Indication: HYPOTHYROIDISM
     Dosage: .15MG PER DAY
     Route: 048
     Dates: start: 19990101, end: 20020308
  4. DIGOXIN [Concomitant]
     Dosage: .125MG PER DAY
     Route: 048
     Dates: start: 19950101, end: 20020308
  5. GLYBURIDE [Concomitant]
     Dosage: 15MG PER DAY
     Route: 048
     Dates: start: 19970101, end: 20020308
  6. FUROSEMIDE [Concomitant]
     Dosage: 120MG PER DAY
     Route: 048
     Dates: start: 19950101, end: 20020308
  7. FOLIC ACID [Concomitant]
     Dosage: 1MG PER DAY
     Route: 048
     Dates: start: 19990101, end: 20020308
  8. ASPIRIN [Concomitant]
     Indication: PROPHYLAXIS
     Dosage: 325MG PER DAY
     Route: 048
     Dates: start: 19950101, end: 20020308
  9. CARVEDILOL [Concomitant]
     Indication: HYPERTENSION
     Dosage: 12.5MG PER DAY
     Route: 048
     Dates: start: 19990101, end: 20020308

REACTIONS (3)
  - ANAEMIA [None]
  - CARDIO-RESPIRATORY ARREST [None]
  - RENAL FAILURE [None]
